FAERS Safety Report 6962281-X (Version None)
Quarter: 2010Q3

REPORT INFORMATION
  Report Type: 
  Country: None (occurrence: None)
  Receive Date: 20100823
  Receipt Date: 20100720
  Transmission Date: 20110219
  Serious: No
  Sender: FDA-Public Use
  Company Number: 015903

PATIENT
  Sex: Female

DRUGS (1)
  1. CIMZIA [Suspect]
     Dosage: SUBCUTANEOUS
     Route: 058
     Dates: start: 20100430

REACTIONS (8)
  - APHONIA [None]
  - BODY TEMPERATURE INCREASED [None]
  - COUGH [None]
  - DRUG INEFFECTIVE [None]
  - LYMPH NODE PAIN [None]
  - LYMPHADENOPATHY [None]
  - MOUTH ULCERATION [None]
  - OROPHARYNGEAL PAIN [None]
